FAERS Safety Report 22351439 (Version 1)
Quarter: 2023Q2

REPORT INFORMATION
  Report Type: Spontaneous
  Country: US (occurrence: None)
  Receive Date: 20230521
  Receipt Date: 20230521
  Transmission Date: 20230721
  Serious: Yes (Hospitalization)
  Sender: FDA-Public Use
  Company Number: None

PATIENT
  Sex: Female
  Weight: 88.9 kg

DRUGS (11)
  1. LENALIDOMIDE [Suspect]
     Active Substance: LENALIDOMIDE
     Indication: Plasma cell myeloma
     Dosage: FREQUENCY : DAILY;?OTHER ROUTE : 0R 21 DAYS ON, 7 D OFF;?
     Route: 050
     Dates: start: 202209
  2. CYANOCOBALAMIN [Concomitant]
  3. ELIQUIS [Concomitant]
     Active Substance: APIXABAN
  4. FERROUS SULFATE [Concomitant]
     Active Substance: FERROUS SULFATE
  5. GABAPENTIN [Concomitant]
     Active Substance: GABAPENTIN
  6. LANTUS [Concomitant]
     Active Substance: INSULIN GLARGINE
  7. LIDOCAINE AND PRILOCAINE [Concomitant]
     Active Substance: LIDOCAINE\PRILOCAINE
  8. LOSARTAN [Concomitant]
  9. METOPROLOL [Concomitant]
  10. NORVASC [Concomitant]
     Active Substance: AMLODIPINE BESYLATE
  11. VITAMIN C [Concomitant]
     Active Substance: ASCORBIC ACID

REACTIONS (2)
  - Cerebrovascular accident [None]
  - Fall [None]
